FAERS Safety Report 8579076-6 (Version None)
Quarter: 2012Q3

REPORT INFORMATION
  Report Type: 
  Country: None (occurrence: None)
  Receive Date: 20120801
  Receipt Date: 20120801
  Transmission Date: 20120928
  Serious: Yes (Hospitalization)
  Sender: FDA-Public Use
  Company Number: None

PATIENT
  Sex: Female

DRUGS (1)
  1. FLEBOGAMMA [Suspect]
     Indication: HYPOGAMMAGLOBULINAEMIA
     Dosage: 20 GRAMS ONE TIME IV
     Route: 042
     Dates: start: 20120316, end: 20120316

REACTIONS (1)
  - MENINGITIS ASEPTIC [None]
